FAERS Safety Report 8472609-X (Version None)
Quarter: 2012Q2

REPORT INFORMATION
  Report Type: 
  Country: None (occurrence: None)
  Receive Date: 20120627
  Receipt Date: 20110711
  Transmission Date: 20120825
  Serious: No
  Sender: FDA-Public Use
  Company Number: US-AMGEN-USASP2011000817

PATIENT
  Age: 78 Year
  Sex: Male
  Weight: 112.47 kg

DRUGS (22)
  1. ARANESP [Suspect]
     Indication: MYELODYSPLASTIC SYNDROME
     Dosage: UNK UNK, Q2WK
     Dates: start: 20101220, end: 20110101
  2. FLOMAX [Concomitant]
     Dosage: 0.4 MG, UNK
  3. VITAMIN B-12 [Concomitant]
     Dosage: 1000 MUG, QMO
  4. PROCRIT [Suspect]
     Dosage: 60000 UNIT, QWK
     Dates: start: 20110616
  5. KLOR-CON [Concomitant]
     Dosage: 20 MEQ, UNK
  6. CALCIUM WITH VITAMIN D             /00944201/ [Concomitant]
     Dosage: UNK
  7. METFORMIN HCL [Concomitant]
     Dosage: 1000 MG, BID
  8. PROCRIT [Suspect]
     Dosage: 40000 IU, QWK
     Dates: start: 20110101
  9. ASPIRIN [Concomitant]
     Dosage: 81 MG, BID
  10. LASIX [Concomitant]
     Dosage: 40 MG, UNK
  11. NIASPAN [Concomitant]
     Dosage: 1000 MG, BID
  12. PROCRIT [Suspect]
     Dosage: 4000 UNIT, QWK
     Dates: start: 20110209, end: 20110609
  13. LIPITOR [Concomitant]
     Dosage: 5 MG, QD
  14. VITAMIN D [Concomitant]
     Dosage: 1.25 MG, UNK
  15. LANTUS [Concomitant]
     Dosage: 46 UNIT, QD
  16. ALLOPURINOL [Concomitant]
     Indication: GOUT
     Dosage: UNK
     Dates: start: 20110301, end: 20110101
  17. PROCRIT [Suspect]
     Indication: MYELODYSPLASTIC SYNDROME
     Dosage: 40000 IU, QWK
     Dates: start: 20091101
  18. TOPROL-XL [Concomitant]
     Dosage: 50 MG, UNK
  19. ZANTAC                             /00550801/ [Concomitant]
     Dosage: 150 MG, QD
  20. PROSCAR [Concomitant]
     Dosage: 5 MG, UNK
  21. CENTRUM                            /01536001/ [Concomitant]
     Dosage: UNK
  22. FOSAMAX [Concomitant]
     Dosage: UNK

REACTIONS (9)
  - THERAPEUTIC RESPONSE DECREASED [None]
  - MALAISE [None]
  - FEELING HOT [None]
  - RESPIRATORY TRACT INFECTION [None]
  - ALLOIMMUNISATION [None]
  - TENDONITIS [None]
  - ARTHRITIS [None]
  - HEADACHE [None]
  - GOUT [None]
